FAERS Safety Report 8572619-8 (Version None)
Quarter: 2012Q2

REPORT INFORMATION
  Report Type: 
  Country: None (occurrence: None)
  Receive Date: 20120420
  Receipt Date: 20111104
  Transmission Date: 20120825
  Serious: Yes (Other)
  Sender: FDA-Public Use
  Company Number: WAES 1111USA00674

PATIENT
  Sex: Female

DRUGS (1)
  1. SINGULAIR [Suspect]
     Dosage: 10 MG/DAILY/PO
     Route: 048
     Dates: start: 20050101, end: 20111001

REACTIONS (2)
  - ASPARTATE AMINOTRANSFERASE INCREASED [None]
  - ALANINE AMINOTRANSFERASE INCREASED [None]
